FAERS Safety Report 6837273-1 (Version None)
Quarter: 2010Q3

REPORT INFORMATION
  Report Type: 
  Country: None (occurrence: None)
  Receive Date: 20100713
  Receipt Date: 20070509
  Transmission Date: 20110219
  Serious: No
  Sender: FDA-Public Use
  Company Number: US-PFIZER INC-2007038234

PATIENT
  Sex: Female
  Weight: 68.181 kg

DRUGS (7)
  1. CHANTIX [Suspect]
     Indication: SMOKING CESSATION THERAPY
     Dates: start: 20070401
  2. LEXAPRO [Concomitant]
  3. ZETIA [Concomitant]
  4. ATORVASTATIN CALCIUM [Concomitant]
  5. MAXZIDE [Concomitant]
     Indication: HYPERTENSION
  6. METFORMIN [Concomitant]
  7. ARTHROTEC [Concomitant]

REACTIONS (4)
  - HYPERHIDROSIS [None]
  - NAUSEA [None]
  - TREMOR [None]
  - VOMITING [None]
